FAERS Safety Report 4980499-2 (Version None)
Quarter: 2006Q2

REPORT INFORMATION
  Report Type: 
  Country: None (occurrence: None)
  Receive Date: 20060424
  Receipt Date: 20060418
  Transmission Date: 20061013
  Serious: Yes (Hospitalization)
  Sender: FDA-Public Use
  Company Number: DE-AVENTIS-200611117DE

PATIENT
  Age: 66 Year
  Sex: Female
  Weight: 87 kg

DRUGS (4)
  1. DOCETAXEL [Suspect]
     Route: 042
     Dates: start: 20060406, end: 20060406
  2. GEMCITABIN [Suspect]
     Route: 042
     Dates: start: 20060406, end: 20060406
  3. GEMCITABIN [Suspect]
     Route: 042
     Dates: start: 20060413, end: 20060413
  4. DARBEPOETIN [Concomitant]
     Route: 058
     Dates: start: 20060406

REACTIONS (6)
  - FATIGUE [None]
  - HAEMOGLOBIN DECREASED [None]
  - PLATELET COUNT DECREASED [None]
  - PYREXIA [None]
  - VERTIGO [None]
  - WHITE BLOOD CELL COUNT DECREASED [None]
